FAERS Safety Report 8759673 (Version 1)
Quarter: 2012Q4

REPORT INFORMATION
  Report Type: Report from Study
  Country: US (occurrence: US)
  Receive Date: 20120829
  Receipt Date: 20120829
  Transmission Date: 20130627
  Serious: Yes (Hospitalization, Disabling)
  Sender: FDA-Public Use
  Company Number: US-ABBOTT-12P-163-0906966-00

PATIENT
  Sex: Male
  Weight: 68.1 kg

DRUGS (5)
  1. HUMIRA 40 MG/ 0.8 ML PRE-FILLED SYRINGE [Suspect]
     Indication: RHEUMATOID ARTHRITIS
     Route: 058
     Dates: start: 200603
  2. HUMIRA 40 MG/ 0.8 ML PRE-FILLED SYRINGE [Suspect]
  3. METHOTREXATE [Concomitant]
     Indication: RHEUMATOID ARTHRITIS
  4. FOLIC ACID [Concomitant]
     Indication: PRODUCT USED FOR UNKNOWN INDICATION
  5. LISINOPRIL [Concomitant]
     Indication: HYPERTENSION

REACTIONS (4)
  - Joint range of motion decreased [Not Recovered/Not Resolved]
  - Osteomyelitis [Recovered/Resolved]
  - Injection site pruritus [Not Recovered/Not Resolved]
  - Injection site rash [Not Recovered/Not Resolved]
